FAERS Safety Report 17851038 (Version 1)
Quarter: 2020Q2

REPORT INFORMATION
  Report Type: Spontaneous
  Country: US (occurrence: US)
  Receive Date: 20200602
  Receipt Date: 20200602
  Transmission Date: 20200714
  Serious: Yes (Other)
  Sender: FDA-Public Use
  Company Number: US-FOUNDATIONCONSUMERHC-2019-US-021021

PATIENT
  Age: 22 Year
  Sex: Female
  Weight: 56.7 kg

DRUGS (2)
  1. PLAN B ONE-STEP [Suspect]
     Active Substance: LEVONORGESTREL
     Indication: POST COITAL CONTRACEPTION
     Dosage: 1.5 MG X 1 DOSE
     Route: 048
     Dates: start: 20191003, end: 20191003
  2. WOMEN^S VITAMIN [Concomitant]

REACTIONS (12)
  - Pregnancy after post coital contraception [Unknown]
  - Dysmenorrhoea [Unknown]
  - Back pain [Unknown]
  - Fatigue [Unknown]
  - Drug ineffective [Unknown]
  - Mood swings [Unknown]
  - Crying [Unknown]
  - Vaginal haemorrhage [Recovered/Resolved]
  - Breast tenderness [Unknown]
  - Abdominal distension [Unknown]
  - Nausea [Unknown]
  - Dizziness [Unknown]

NARRATIVE: CASE EVENT DATE: 20191003
